FAERS Safety Report 15280316 (Version 1)
Quarter: 2018Q3

REPORT INFORMATION
  Report Type: Spontaneous
  Country: US (occurrence: US)
  Receive Date: 20180730
  Receipt Date: 20180730
  Transmission Date: 20181010
  Serious: Yes (Hospitalization)
  Sender: FDA-Public Use
  Company Number: None

PATIENT
  Age: 63 Year
  Sex: Female

DRUGS (4)
  1. AMOXICLAV [Concomitant]
     Active Substance: AMOXICILLIN\CLAVULANIC ACID
  2. WARFARIN [Concomitant]
     Active Substance: WARFARIN
  3. VANCOMYCIN [Concomitant]
     Active Substance: VANCOMYCIN
  4. CAPECITABINE. [Suspect]
     Active Substance: CAPECITABINE
     Indication: BREAST CANCER IN SITU
     Route: 048
     Dates: start: 20170920

REACTIONS (1)
  - Hospice care [None]

NARRATIVE: CASE EVENT DATE: 20180727
